FAERS Safety Report 5477719-7 (Version None)
Quarter: 2007Q4

REPORT INFORMATION
  Report Type: 
  Country: None (occurrence: None)
  Receive Date: 20071003
  Receipt Date: 20071003
  Transmission Date: 20080405
  Serious: Yes (Hospitalization)
  Sender: FDA-Public Use
  Company Number: None

PATIENT
  Age: 59 Year
  Sex: Male

DRUGS (1)
  1. DICLOFENAC [Suspect]
     Indication: PAIN
     Dosage: 50MG  TID  PO
     Route: 048
     Dates: start: 20070517, end: 20070929

REACTIONS (2)
  - ANAEMIA [None]
  - DUODENAL ULCER HAEMORRHAGE [None]
